FAERS Safety Report 4442258-9 (Version None)
Quarter: 2004Q3

REPORT INFORMATION
  Report Type: 
  Country: None (occurrence: None)
  Receive Date: 20040903
  Receipt Date: 20040716
  Transmission Date: 20050211
  Serious: Yes (Other)
  Sender: FDA-Public Use
  Company Number: 2004UW14807

PATIENT
  Age: 46 Year
  Sex: Female

DRUGS (2)
  1. CRESTOR [Suspect]
     Dates: start: 20040715
  2. IODINE [Suspect]
     Indication: COMPUTERISED TOMOGRAM
     Dates: start: 20040716

REACTIONS (1)
  - EMOTIONAL DISTRESS [None]
